FAERS Safety Report 11309978 (Version 3)
Quarter: 2015Q3

REPORT INFORMATION
  Report Type: Report from Study
  Country: JP (occurrence: JP)
  Receive Date: 20150724
  Receipt Date: 20150827
  Transmission Date: 20151125
  Serious: Yes (Life-Threatening)
  Sender: FDA-Public Use
  Company Number: JP-PFIZER INC-2014322219

PATIENT
  Age: 77 Year
  Sex: Male
  Weight: 36 kg

DRUGS (12)
  1. FULCALIQ [Concomitant]
     Active Substance: AMINO ACIDS\CARBOHYDRATES\ELECTROLYTES NOS\VITAMINS
     Dosage: 903 ML, DAILY
     Route: 041
     Dates: start: 20110121, end: 20110227
  2. PREDONINE [Concomitant]
     Active Substance: PREDNISOLONE\PREDNISOLONE ACETATE\PREDNISOLONE SODIUM SUCCINATE
     Indication: CHRONIC RESPIRATORY FAILURE
     Dosage: 5 MG, DAILY
     Route: 048
     Dates: end: 20110225
  3. NEOPHYLLIN [Concomitant]
     Indication: PNEUMONIA
     Dosage: 10 ML, DAILY
     Route: 041
     Dates: start: 20110121, end: 20110225
  4. CLARITH [Concomitant]
     Active Substance: CLARITHROMYCIN
     Indication: CHRONIC RESPIRATORY FAILURE
     Dosage: 200 MG, DAILY
     Route: 048
     Dates: end: 20110225
  5. PARIET [Concomitant]
     Active Substance: RABEPRAZOLE SODIUM
     Dosage: 10 MG, DAILY
     Route: 048
     Dates: end: 20110225
  6. MEDLENIK [Concomitant]
     Active Substance: CUPRIC SULFATE\FERRIC CHLORIDE\MANGANESE CHLORIDE\POTASSIUM IODIDE\ZINC SULFATE
     Dosage: 1 DF, DAILY
     Route: 041
     Dates: start: 20110121, end: 20110227
  7. FULCALIQ [Concomitant]
     Active Substance: AMINO ACIDS\CARBOHYDRATES\ELECTROLYTES NOS\VITAMINS
     Dosage: 1003 ML, DAILY
     Route: 041
     Dates: start: 20110129, end: 20110227
  8. BLADDERON [Concomitant]
     Active Substance: FLAVOXATE
     Indication: HYPERTONIC BLADDER
     Dosage: 600 MG, DAILY
     Route: 048
     Dates: end: 20110225
  9. MUCODYNE [Concomitant]
     Active Substance: CARBOCYSTEINE
     Indication: CHRONIC RESPIRATORY FAILURE
     Dosage: 1500 MG, DAILY
     Route: 048
     Dates: end: 20110225
  10. INTRALIPOS [Concomitant]
     Active Substance: SOYBEAN OIL
     Dosage: 200 ML, DAILY
     Route: 041
     Dates: start: 20110121, end: 20110227
  11. SELBEX [Concomitant]
     Active Substance: TEPRENONE
     Dosage: 1.5 G, DAILY
     Route: 048
     Dates: end: 20110225
  12. ZOSYN [Suspect]
     Active Substance: PIPERACILLIN SODIUM\TAZOBACTAM SODIUM
     Indication: PNEUMONIA
     Dosage: 4.5 G, 3X/DAY
     Route: 041
     Dates: start: 20110203, end: 20110214

REACTIONS (2)
  - Renal disorder [Not Recovered/Not Resolved]
  - Liver disorder [Not Recovered/Not Resolved]

NARRATIVE: CASE EVENT DATE: 20110214
